FAERS Safety Report 9255633 (Version 7)
Quarter: 2014Q1

REPORT INFORMATION
  Report Type: Report from Study
  Country: JP (occurrence: JP)
  Receive Date: 20130425
  Receipt Date: 20140310
  Transmission Date: 20141002
  Serious: Yes (Death)
  Sender: FDA-Public Use
  Company Number: JP-GLAXOSMITHKLINE-B0886023A

PATIENT
  Age: 71 Year
  Sex: Female
  Weight: 43 kg

DRUGS (6)
  1. VOTRIENT 200MG [Suspect]
     Indication: LEIOMYOSARCOMA METASTATIC
     Dosage: 800MG PER DAY
     Route: 048
     Dates: start: 20130122, end: 20130319
  2. VOTRIENT 200MG [Suspect]
     Indication: LEIOMYOSARCOMA METASTATIC
     Dosage: 800MG PER DAY
     Route: 048
     Dates: start: 20130402, end: 20130416
  3. PARIET [Concomitant]
     Indication: PROPHYLAXIS AGAINST GASTROINTESTINAL ULCER
     Dosage: 10MG PER DAY
     Route: 048
     Dates: end: 20130416
  4. LYRICA [Concomitant]
     Indication: NEUROPATHY PERIPHERAL
     Dosage: 25MG PER DAY
     Route: 048
     Dates: end: 20130416
  5. NOVAMIN (PROCHLORPERAZINE MALEATE) [Concomitant]
     Indication: LEIOMYOSARCOMA
     Route: 065
     Dates: end: 20130416
  6. OXYCONTIN [Concomitant]
     Indication: LEIOMYOSARCOMA
     Route: 048

REACTIONS (6)
  - Haemoptysis [Fatal]
  - Asphyxia [Fatal]
  - Hypertension [Recovering/Resolving]
  - Palmar-plantar erythrodysaesthesia syndrome [Recovering/Resolving]
  - Stomatitis [Recovering/Resolving]
  - Proteinuria [Not Recovered/Not Resolved]
